FAERS Safety Report 13258461 (Version 2)
Quarter: 2017Q1

REPORT INFORMATION
  Report Type: Spontaneous
  Country: US (occurrence: US)
  Receive Date: 20170222
  Receipt Date: 20170222
  Transmission Date: 20170428
  Serious: No
  Sender: FDA-Public Use
  Company Number: US-TEVA-741356ACC

PATIENT
  Sex: Male

DRUGS (3)
  1. QVAR [Suspect]
     Active Substance: BECLOMETHASONE DIPROPIONATE
     Indication: RESPIRATORY DISORDER
     Route: 065
  2. QVAR [Suspect]
     Active Substance: BECLOMETHASONE DIPROPIONATE
     Indication: BRONCHIAL HYPERREACTIVITY
  3. QVAR [Suspect]
     Active Substance: BECLOMETHASONE DIPROPIONATE
     Indication: BRONCHITIS BACTERIAL

REACTIONS (2)
  - Drug administered to patient of inappropriate age [Unknown]
  - Drug ineffective [Unknown]
